FAERS Safety Report 20599918 (Version 1)
Quarter: 2022Q1

REPORT INFORMATION
  Report Type: Spontaneous
  Country: US (occurrence: US)
  Receive Date: 20220316
  Receipt Date: 20220316
  Transmission Date: 20220424
  Serious: Yes (Death, Hospitalization, Other)
  Sender: FDA-Public Use
  Company Number: US-ALVOGEN-2022-ALVOGEN-118633

PATIENT
  Age: 35 Year
  Sex: Female

DRUGS (6)
  1. FENTANYL [Suspect]
     Active Substance: FENTANYL
     Indication: Suicide attempt
     Route: 048
  2. COCAINE [Suspect]
     Active Substance: COCAINE
     Indication: Suicide attempt
     Route: 048
  3. OLANZAPINE [Suspect]
     Active Substance: OLANZAPINE
     Indication: Suicide attempt
     Route: 048
  4. ESZOPICLONE [Suspect]
     Active Substance: ESZOPICLONE
     Indication: Suicide attempt
     Route: 048
  5. QUETIAPINE [Suspect]
     Active Substance: QUETIAPINE
     Indication: Suicide attempt
     Route: 048
  6. VENLAFAXINE [Suspect]
     Active Substance: VENLAFAXINE HYDROCHLORIDE
     Indication: Suicide attempt
     Route: 048

REACTIONS (1)
  - Completed suicide [Fatal]
